FAERS Safety Report 20150157 (Version 2)
Quarter: 2021Q4

REPORT INFORMATION
  Report Type: Report from Study
  Country: DE (occurrence: DE)
  Receive Date: 20211206
  Receipt Date: 20211222
  Transmission Date: 20220303
  Serious: Yes (Life-Threatening, Other)
  Sender: FDA-Public Use
  Company Number: DE-CELLTRION INC.-2020DE023883

PATIENT

DRUGS (7)
  1. TRUXIMA [Suspect]
     Active Substance: RITUXIMAB-ABBS
     Indication: Marginal zone lymphoma
     Dosage: 375 MG/M2, UNK (DAY 1 EVERY CYCLE)
     Route: 042
     Dates: start: 20200508, end: 20200508
  2. TRUXIMA [Suspect]
     Active Substance: RITUXIMAB-ABBS
     Dosage: 100 MG (REGIMEN 2)
     Route: 065
  3. TRUXIMA [Suspect]
     Active Substance: RITUXIMAB-ABBS
     Dosage: 500 MG (REGIMEN 3)
     Route: 065
  4. TRUXIMA [Suspect]
     Active Substance: RITUXIMAB-ABBS
     Dosage: 375 MG/M2, DAY 1 EVERY 8 WEEKS OF MAINTENANCE
     Route: 042
     Dates: start: 20200508, end: 20211020
  5. TRUXIMA [Suspect]
     Active Substance: RITUXIMAB-ABBS
     Dosage: 375 MG/M2, ACCORDING PROTOCOL (END DATE: 20-OCT-2021 00:00)
     Route: 042
  6. COPANLISIB [Suspect]
     Active Substance: COPANLISIB
     Indication: Marginal zone lymphoma
     Dosage: 60 MG (DAY 1, 8, 15 EVERY CYCLE)
     Route: 042
     Dates: start: 20200508, end: 20200514
  7. COPANLISIB [Suspect]
     Active Substance: COPANLISIB
     Dosage: 60 MG (DAY 1 AND 15 EVERY CYCLE OF MAINTENANCE)
     Route: 042
     Dates: start: 20200508, end: 20211006

REACTIONS (5)
  - Thrombocytopenia [Recovered/Resolved]
  - Thrombocytopenia [Recovered/Resolved]
  - Thrombocytopenia [Not Recovered/Not Resolved]
  - Neutropenia [Recovered/Resolved]
  - Off label use [Unknown]

NARRATIVE: CASE EVENT DATE: 20200422
